FAERS Safety Report 19890806 (Version 1)
Quarter: 2021Q3

REPORT INFORMATION
  Report Type: Spontaneous
  Country: US (occurrence: US)
  Receive Date: 20210927
  Receipt Date: 20210927
  Transmission Date: 20211014
  Serious: No
  Sender: FDA-Public Use
  Company Number: US-EPIHEALTH-2020-US-003137

PATIENT
  Age: 54 Year
  Sex: Female
  Weight: 81.65 kg

DRUGS (2)
  1. MYCELAIR WATER [COSMETICS] [Suspect]
     Active Substance: COSMETICS
     Route: 061
     Dates: start: 20200209
  2. RHOFADE [Suspect]
     Active Substance: OXYMETAZOLINE HYDROCHLORIDE
     Indication: ROSACEA
     Dosage: ONCE DAILY
     Route: 061
     Dates: start: 20200209, end: 20200212

REACTIONS (1)
  - Drug ineffective [Recovered/Resolved]

NARRATIVE: CASE EVENT DATE: 20200209
